FAERS Safety Report 25162436 (Version 1)
Quarter: 2025Q2

REPORT INFORMATION
  Report Type: Spontaneous
  Country: US (occurrence: US)
  Receive Date: 20250404
  Receipt Date: 20250404
  Transmission Date: 20250716
  Serious: No
  Sender: NX DEVELOPMENT CORPORATION
  Company Number: US-NXDC-2025GLE00018

PATIENT
  Age: 13 Year
  Sex: Male
  Weight: 44.5 kg

DRUGS (1)
  1. GLEOLAN [Suspect]
     Active Substance: AMINOLEVULINIC ACID HYDROCHLORIDE
     Indication: Photodynamic diagnostic procedure
     Dates: start: 20250226, end: 20250226

REACTIONS (1)
  - Drug ineffective [Unknown]

NARRATIVE: CASE EVENT DATE: 20250226
